FAERS Safety Report 19514681 (Version 1)
Quarter: 2021Q3

REPORT INFORMATION
  Report Type: Spontaneous
  Country: FR (occurrence: FR)
  Receive Date: 20210709
  Receipt Date: 20210709
  Transmission Date: 20211014
  Serious: Yes (Hospitalization, Other)
  Sender: FDA-Public Use
  Company Number: FR-PFIZER INC-2021803265

PATIENT
  Age: 18 Year
  Sex: Female
  Weight: 57 kg

DRUGS (3)
  1. TRAMADOL. [Suspect]
     Active Substance: TRAMADOL
     Dosage: UNK
     Route: 065
     Dates: start: 20210425, end: 20210425
  2. ALPRAZOLAM. [Suspect]
     Active Substance: ALPRAZOLAM
     Dosage: 1.13 MG, SINGLE
     Route: 048
     Dates: start: 202104, end: 20210427
  3. COCAINE [Suspect]
     Active Substance: COCAINE
     Dosage: UNK
     Route: 065
     Dates: start: 20210424, end: 20210425

REACTIONS (6)
  - Multiple injuries [Recovered/Resolved]
  - Suicidal ideation [Unknown]
  - Road traffic accident [Recovered/Resolved]
  - Suicide attempt [Recovered/Resolved]
  - Drug abuse [Not Recovered/Not Resolved]
  - Electrocardiogram change [Recovered/Resolved]

NARRATIVE: CASE EVENT DATE: 202104
